FAERS Safety Report 9039762 (Version 2)
Quarter: 2013Q1

REPORT INFORMATION
  Report Type: Spontaneous
  Country: US (occurrence: US)
  Receive Date: 20130130
  Receipt Date: 20130220
  Transmission Date: 20140127
  Serious: Yes (Hospitalization)
  Sender: FDA-Public Use
  Company Number: US-BIOGENIDEC-2013BI008529

PATIENT
  Age: 63 Year
  Sex: Female

DRUGS (1)
  1. TYSABRI [Suspect]
     Indication: MULTIPLE SCLEROSIS
     Route: 042
     Dates: start: 20121113

REACTIONS (4)
  - Cellulitis [Recovered/Resolved]
  - Ear infection [Recovered/Resolved with Sequelae]
  - Cystitis [Not Recovered/Not Resolved]
  - Rash pruritic [Not Recovered/Not Resolved]
